FAERS Safety Report 8470537-7 (Version None)
Quarter: 2012Q2

REPORT INFORMATION
  Report Type: 
  Country: None (occurrence: None)
  Receive Date: 20120323
  Receipt Date: 20111011
  Transmission Date: 20120825
  Serious: Yes (Hospitalization, Other)
  Sender: FDA-Public Use
  Company Number: 163-21880-11101369

PATIENT
  Age: 69 Year
  Sex: Female

DRUGS (5)
  1. REVLIMID [Suspect]
  2. REVLIMID [Suspect]
     Indication: MULTIPLE MYELOMA
     Dosage: 25 MG, 1 IN 1 D, PO : 15 MG, 1 IN 1 D, PO : 10 MG, 1 IN 1 D, PO : 20 MG, DAYS 1-21 OF 28, PO
     Route: 048
     Dates: start: 20110601, end: 20110901
  3. REVLIMID [Suspect]
     Indication: MULTIPLE MYELOMA
     Dosage: 25 MG, 1 IN 1 D, PO : 15 MG, 1 IN 1 D, PO : 10 MG, 1 IN 1 D, PO : 20 MG, DAYS 1-21 OF 28, PO
     Route: 048
     Dates: start: 20100101
  4. REVLIMID [Suspect]
     Indication: MULTIPLE MYELOMA
     Dosage: 25 MG, 1 IN 1 D, PO : 15 MG, 1 IN 1 D, PO : 10 MG, 1 IN 1 D, PO : 20 MG, DAYS 1-21 OF 28, PO
     Route: 048
     Dates: start: 20110201
  5. REVLIMID [Suspect]
     Indication: MULTIPLE MYELOMA
     Dosage: 25 MG, 1 IN 1 D, PO : 15 MG, 1 IN 1 D, PO : 10 MG, 1 IN 1 D, PO : 20 MG, DAYS 1-21 OF 28, PO
     Route: 048
     Dates: start: 20100401

REACTIONS (1)
  - FULL BLOOD COUNT DECREASED [None]
